FAERS Safety Report 5121832-0 (Version None)
Quarter: 2006Q4

REPORT INFORMATION
  Report Type: 
  Country: None (occurrence: None)
  Receive Date: 20061003
  Receipt Date: 20060921
  Transmission Date: 20070319
  Serious: Yes (Other)
  Sender: FDA-Public Use
  Company Number: 230326

PATIENT

DRUGS (5)
  1. XOLAIR [Suspect]
     Indication: ASTHMA
  2. PREDNISOLONE [Concomitant]
  3. FLUTICASONE (FLUTICASONE PROPIONATE) [Concomitant]
  4. LONG ACTING BETA-2 AGONIST NOS [Concomitant]
  5. SALMETEROL [Concomitant]

REACTIONS (2)
  - NASAL CONGESTION [None]
  - NASAL POLYPS [None]
